FAERS Safety Report 4639476-3 (Version None)
Quarter: 2005Q2

REPORT INFORMATION
  Report Type: 
  Country: None (occurrence: None)
  Receive Date: 20050418
  Receipt Date: 20050404
  Transmission Date: 20051028
  Serious: Yes (Hospitalization)
  Sender: FDA-Public Use
  Company Number: CHPA2005US01065

PATIENT
  Age: 76 Year
  Sex: Female
  Weight: 56.7 kg

DRUGS (6)
  1. PERDIEM OVERNIGHT RELIEF (NCH)(PSYLLIUM, SENNA) GRANULATE [Suspect]
     Indication: CONSTIPATION
     Dosage: 1 TSP, QD, ORAL
     Route: 048
     Dates: start: 19750101, end: 20040101
  2. VICODIN [Concomitant]
  3. ELAVIL [Concomitant]
  4. METOPROLOL TARTRATE [Concomitant]
  5. ZESTRIL [Concomitant]
  6. B12 (CYANOCOBALAMIN-TANNIN COMPLEX) [Concomitant]

REACTIONS (2)
  - GASTRIC ULCER [None]
  - MYOCARDIAL INFARCTION [None]
